FAERS Safety Report 25637530 (Version 2)
Quarter: 2025Q3

REPORT INFORMATION
  Report Type: Report from Study
  Country: US (occurrence: US)
  Receive Date: 20250804
  Receipt Date: 20250827
  Transmission Date: 20251021
  Serious: Yes (Hospitalization)
  Sender: TAKEDA
  Company Number: US-TAKEDA-2025TUS067868

PATIENT
  Sex: Male

DRUGS (2)
  1. APADAMTASE ALFA [Suspect]
     Active Substance: APADAMTASE ALFA
     Indication: Congenital thrombotic thrombocytopenic purpura
     Dosage: 4683 INTERNATIONAL UNIT, Q2WEEKS
  2. APADAMTASE ALFA [Suspect]
     Active Substance: APADAMTASE ALFA
     Dosage: UNK UNK, 1/WEEK
     Dates: start: 2024

REACTIONS (6)
  - ADAMTS13 activity decreased [Unknown]
  - Malaise [Unknown]
  - Pyrexia [Unknown]
  - Gastrointestinal infection [Recovered/Resolved]
  - Product dose omission issue [Recovered/Resolved]
  - Product distribution issue [Recovered/Resolved]
